FAERS Safety Report 15112513 (Version 2)
Quarter: 2018Q3

REPORT INFORMATION
  Report Type: Spontaneous
  Country: US (occurrence: US)
  Receive Date: 20180705
  Receipt Date: 20180709
  Transmission Date: 20181010
  Serious: Yes (Hospitalization, Other)
  Sender: FDA-Public Use
  Company Number: US-SUNOVION-2018SUN002651

PATIENT
  Sex: Female

DRUGS (2)
  1. APTIOM [Suspect]
     Active Substance: ESLICARBAZEPINE ACETATE
     Dosage: 2400 MG, SINGLE
     Route: 048
  2. APTIOM [Suspect]
     Active Substance: ESLICARBAZEPINE ACETATE
     Dosage: 800 MG, HS
     Route: 048

REACTIONS (10)
  - Dysarthria [Unknown]
  - Confusional state [Unknown]
  - Memory impairment [Unknown]
  - Drug dose omission [Unknown]
  - Abnormal behaviour [Unknown]
  - Gait disturbance [Unknown]
  - Vomiting [Unknown]
  - Seizure [Unknown]
  - Somnolence [Unknown]
  - Intentional overdose [Unknown]

NARRATIVE: CASE EVENT DATE: 201806
